FAERS Safety Report 24319177 (Version 1)
Quarter: 2024Q3

REPORT INFORMATION
  Report Type: Other
  Country: US (occurrence: US)
  Receive Date: 20240913
  Receipt Date: 20240913
  Transmission Date: 20241016
  Serious: Yes (Hospitalization)
  Sender: JIANGSU HENGRUI MEDICINE
  Company Number: US-Jiangsu Hengrui Medicine Co., Ltd.-2161593

PATIENT
  Age: 67 Year
  Sex: Female
  Weight: 61.7 kg

DRUGS (3)
  1. CYCLOPHOSPHAMIDE [Suspect]
     Active Substance: CYCLOPHOSPHAMIDE
     Indication: Primary amyloidosis
     Dates: start: 20240813
  2. BIRTAMIMAB [Suspect]
     Active Substance: BIRTAMIMAB
     Dates: start: 20240813, end: 20240813
  3. BORTEZOMIB [Concomitant]
     Active Substance: BORTEZOMIB
     Dates: start: 20240813

REACTIONS (3)
  - Chest pain [Not Recovered/Not Resolved]
  - Acute pulmonary oedema [Not Recovered/Not Resolved]
  - Dyspnoea [Not Recovered/Not Resolved]

NARRATIVE: CASE EVENT DATE: 20240828
